FAERS Safety Report 7939302-0 (Version None)
Quarter: 2011Q4

REPORT INFORMATION
  Report Type: 
  Country: None (occurrence: None)
  Receive Date: 20111125
  Receipt Date: 20110307
  Transmission Date: 20120403
  Serious: No
  Sender: FDA-Public Use
  Company Number: US-BAYER-2011-078240

PATIENT
  Sex: Female

DRUGS (6)
  1. TAXOTERE [Concomitant]
  2. LEUKINE [Suspect]
     Indication: BREAST CANCER
  3. ADRIAMYCIN PFS [Concomitant]
  4. CYTOXAN [Concomitant]
  5. ATIVAN [Concomitant]
  6. COMPAZINE [Concomitant]

REACTIONS (1)
  - DYSPEPSIA [None]
